FAERS Safety Report 13853147 (Version 1)
Quarter: 2017Q3

REPORT INFORMATION
  Report Type: Spontaneous
  Country: KR (occurrence: KR)
  Receive Date: 20170809
  Receipt Date: 20170809
  Transmission Date: 20171127
  Serious: Yes (Death, Other)
  Sender: FDA-Public Use
  Company Number: KR-009507513-1708KOR003825

PATIENT
  Sex: Male

DRUGS (2)
  1. FINASTERIDE. [Suspect]
     Active Substance: FINASTERIDE
     Indication: ALOPECIA
     Dosage: UNK
     Route: 048
  2. FINASTERIDE. [Suspect]
     Active Substance: FINASTERIDE
     Indication: PROSTATOMEGALY

REACTIONS (40)
  - Anhedonia [Unknown]
  - Depression [Unknown]
  - Completed suicide [Fatal]
  - Emotional poverty [Unknown]
  - Impaired reasoning [Unknown]
  - Obesity [Unknown]
  - Ejaculation disorder [Unknown]
  - Libido decreased [Unknown]
  - Gynaecomastia [Unknown]
  - Body temperature decreased [Unknown]
  - Tinnitus [Unknown]
  - Chloasma [Unknown]
  - Sebaceous gland disorder [Unknown]
  - Listless [Unknown]
  - Muscle atrophy [Unknown]
  - Penile size reduced [Unknown]
  - Genital hypoaesthesia [Unknown]
  - Asthenia [Unknown]
  - Erectile dysfunction [Unknown]
  - Suicide attempt [Unknown]
  - Bradyphrenia [Unknown]
  - Dry skin [Unknown]
  - Blood glucose increased [Unknown]
  - Blood triglycerides increased [Unknown]
  - Fat tissue increased [Unknown]
  - Anxiety [Unknown]
  - Insomnia [Unknown]
  - Skin atrophy [Unknown]
  - Body mass index increased [Unknown]
  - Scrotal disorder [Unknown]
  - Semen volume decreased [Unknown]
  - Loss of libido [Unknown]
  - Memory impairment [Unknown]
  - Peyronie^s disease [Unknown]
  - Suicidal ideation [Unknown]
  - High density lipoprotein decreased [Unknown]
  - Hypoaesthesia [Unknown]
  - Male orgasmic disorder [Unknown]
  - Panic attack [Unknown]
  - Fatigue [Unknown]
